FAERS Safety Report 6805057-6 (Version None)
Quarter: 2010Q2

REPORT INFORMATION
  Report Type: 
  Country: None (occurrence: None)
  Receive Date: 20100628
  Receipt Date: 20070616
  Transmission Date: 20101027
  Serious: No
  Sender: FDA-Public Use
  Company Number: US-PFIZER INC-2007074353

PATIENT
  Sex: Female

DRUGS (2)
  1. XALATAN [Suspect]
  2. TIMOLOL MALEATE [Concomitant]

REACTIONS (1)
  - EYELASH THICKENING [None]
